FAERS Safety Report 6992434-6 (Version None)
Quarter: 2010Q3

REPORT INFORMATION
  Report Type: 
  Country: None (occurrence: None)
  Receive Date: 20100917
  Receipt Date: 20100908
  Transmission Date: 20110219
  Serious: Yes (Hospitalization)
  Sender: FDA-Public Use
  Company Number: PHHY2010JP59742

PATIENT
  Age: 64 Year
  Sex: Male

DRUGS (4)
  1. AFINITOR [Suspect]
     Indication: RENAL CELL CARCINOMA
     Dosage: UNK
     Route: 048
     Dates: end: 20100901
  2. TEGRETOL [Suspect]
     Dosage: UNK
     Route: 048
  3. RINDERON [Concomitant]
     Dosage: UNK
     Route: 048
  4. FAMOTIDINE [Concomitant]
     Dosage: UNK
     Route: 048

REACTIONS (2)
  - INTERSTITIAL LUNG DISEASE [None]
  - SKIN DISORDER [None]
